FAERS Safety Report 4806715-5 (Version None)
Quarter: 2005Q4

REPORT INFORMATION
  Report Type: 
  Country: None (occurrence: None)
  Receive Date: 20051019
  Receipt Date: 20051014
  Transmission Date: 20060501
  Serious: Yes (Other)
  Sender: FDA-Public Use
  Company Number: FRVA20050028

PATIENT
  Age: 26 Year
  Sex: Female

DRUGS (4)
  1. FROVATRIPTAN SUCCINATE 2.5 MG VERNALIS [Suspect]
     Indication: MIGRAINE
     Dosage: 2.5MG ONCE PO
     Route: 048
     Dates: start: 20050623, end: 20050623
  2. CETIRIZINE HCL [Concomitant]
  3. RINELON (MOMETASONE) [Concomitant]
  4. EBASTINE/PSEUODEPHEDRINE [Concomitant]

REACTIONS (3)
  - FACE OEDEMA [None]
  - LARYNGEAL OEDEMA [None]
  - SKIN TEST POSITIVE [None]
